FAERS Safety Report 4455545-5 (Version None)
Quarter: 2004Q3

REPORT INFORMATION
  Report Type: 
  Country: None (occurrence: None)
  Receive Date: 20040917
  Receipt Date: 20040831
  Transmission Date: 20050211
  Serious: Yes (Other)
  Sender: FDA-Public Use
  Company Number: CEL-2004-01480-ROC

PATIENT
  Age: 6 Year
  Sex: Male
  Weight: 14.4 kg

DRUGS (4)
  1. METADATE CD [Suspect]
     Indication: ATTENTION DEFICIT/HYPERACTIVITY DISORDER
     Dosage: 10MG, INCREASED TO 20 MG THEN DECREASED TO 10MG, QAM, ROUTE PO
     Route: 048
     Dates: start: 20040607, end: 20040703
  2. STRATTERA [Concomitant]
  3. DDAVP [Concomitant]
  4. LUVOX [Concomitant]

REACTIONS (4)
  - HEADACHE [None]
  - MYDRIASIS [None]
  - OPTIC ATROPHY [None]
  - VISUAL DISTURBANCE [None]
